FAERS Safety Report 12385132 (Version 1)
Quarter: 2016Q2

REPORT INFORMATION
  Report Type: Report from Study
  Country: US (occurrence: US)
  Receive Date: 20160519
  Receipt Date: 20160519
  Transmission Date: 20160815
  Serious: Yes (Death, Life-Threatening, Disabling, Other)
  Sender: FDA-Public Use
  Company Number: US-ASTRAZENECA-2016SE51791

PATIENT
  Age: 16120 Day
  Sex: Male
  Weight: 208.7 kg

DRUGS (4)
  1. ABREVA [Concomitant]
     Active Substance: DOCOSANOL
     Route: 055
  2. LASIX [Concomitant]
     Active Substance: FUROSEMIDE
  3. POTASSIUM [Concomitant]
     Active Substance: POTASSIUM
  4. SYMBICORT [Suspect]
     Active Substance: BUDESONIDE\FORMOTEROL FUMARATE DIHYDRATE
     Indication: CHRONIC OBSTRUCTIVE PULMONARY DISEASE
     Dosage: 160/4.5 MICROGRAMS, 2 PUFFS TWICE A DAY
     Route: 055
     Dates: start: 2012

REACTIONS (8)
  - Pneumonia [Unknown]
  - Weight abnormal [Unknown]
  - Monoplegia [Unknown]
  - Coma [Unknown]
  - Blood pressure abnormal [Unknown]
  - Arrhythmia [Unknown]
  - Blood cholesterol abnormal [Unknown]
  - Death [Fatal]

NARRATIVE: CASE EVENT DATE: 20160508
